FAERS Safety Report 5695045-8 (Version None)
Quarter: 2008Q2

REPORT INFORMATION
  Report Type: 
  Country: None (occurrence: None)
  Receive Date: 20080404
  Receipt Date: 20080325
  Transmission Date: 20081010
  Serious: Yes (Other)
  Sender: FDA-Public Use
  Company Number: US-PFIZER INC-2008004733

PATIENT
  Sex: Male

DRUGS (2)
  1. CHANTIX [Suspect]
  2. WARFARIN SODIUM [Interacting]
     Indication: ATRIAL FIBRILLATION

REACTIONS (2)
  - DRUG INTERACTION [None]
  - INTERNATIONAL NORMALISED RATIO INCREASED [None]
